FAERS Safety Report 4375021-8 (Version None)
Quarter: 2004Q2

REPORT INFORMATION
  Report Type: 
  Country: None (occurrence: None)
  Receive Date: 20040604
  Receipt Date: 20040523
  Transmission Date: 20050107
  Serious: Yes (Hospitalization)
  Sender: FDA-Public Use
  Company Number: 2004-116347-NL

PATIENT
  Sex: Female

DRUGS (2)
  1. GANIRELIX (ORGALUTRAN) [Suspect]
     Indication: IN VITRO FERTILISATION
     Dosage: 25 MG SUBCUTANEOUS
     Route: 058
     Dates: start: 20040501, end: 20040501
  2. FOLLITROPIN ALFA [Concomitant]

REACTIONS (1)
  - HEPATIC ENZYME ABNORMAL [None]
